FAERS Safety Report 19026205 (Version 2)
Quarter: 2021Q1

REPORT INFORMATION
  Report Type: Report from Study
  Country: AU (occurrence: AU)
  Receive Date: 20210318
  Receipt Date: 20210326
  Transmission Date: 20210420
  Serious: Yes (Hospitalization, Other)
  Sender: FDA-Public Use
  Company Number: NVSC2021AU051363

PATIENT
  Age: 68 Year
  Sex: Female

DRUGS (1)
  1. MAYZENT [Suspect]
     Active Substance: SIPONIMOD
     Indication: SECONDARY PROGRESSIVE MULTIPLE SCLEROSIS
     Dosage: 0.75 MG, QD
     Route: 048
     Dates: start: 20210111

REACTIONS (10)
  - Multiple sclerosis [Unknown]
  - Fall [Unknown]
  - Fatigue [Unknown]
  - Transient global amnesia [Unknown]
  - Incoherent [Unknown]
  - Pneumonia aspiration [Unknown]
  - Cardiac disorder [Unknown]
  - Nausea [Unknown]
  - Acute myocardial infarction [Unknown]
  - Pneumonia [Unknown]

NARRATIVE: CASE EVENT DATE: 20210112
